FAERS Safety Report 10043714 (Version 3)
Quarter: 2014Q2

REPORT INFORMATION
  Report Type: Report from Study
  Country: JP (occurrence: JP)
  Receive Date: 20140328
  Receipt Date: 20140612
  Transmission Date: 20141212
  Serious: Yes (Other)
  Sender: FDA-Public Use
  Company Number: JP-AMGEN-JPNCT2014019968

PATIENT
  Sex: Male
  Weight: 73 kg

DRUGS (4)
  1. DENOSUMAB [Suspect]
     Indication: METASTASES TO BONE
     Dosage: 120 MG, UNK
     Route: 058
     Dates: start: 20130110, end: 20131007
  2. ASPARA-CA [Concomitant]
     Dosage: 1200 MG, QD
     Route: 048
     Dates: start: 20130110, end: 20131007
  3. ALFAROL [Concomitant]
     Dosage: 0.50 MUG, QD
     Route: 048
     Dates: start: 20130110, end: 20131007
  4. CASODEX [Concomitant]
     Dosage: UNK
     Route: 065
     Dates: start: 20121211

REACTIONS (1)
  - Bone marrow necrosis [Recovering/Resolving]
